FAERS Safety Report 4993513-5 (Version None)
Quarter: 2006Q2

REPORT INFORMATION
  Report Type: 
  Country: None (occurrence: None)
  Receive Date: 20060505
  Receipt Date: 20060404
  Transmission Date: 20061013
  Serious: Yes (Other)
  Sender: FDA-Public Use
  Company Number: 2006AP01613

PATIENT
  Age: 30528 Day
  Sex: Male
  Weight: 36.6 kg

DRUGS (18)
  1. OMEPRAL [Suspect]
     Indication: UPPER GASTROINTESTINAL HAEMORRHAGE
     Route: 048
     Dates: start: 20060309, end: 20060325
  2. NAFATAT [Suspect]
     Indication: THROMBOSIS PROPHYLAXIS
     Route: 041
     Dates: start: 20060311, end: 20060330
  3. ALLOID G [Concomitant]
     Route: 048
     Dates: start: 20060309
  4. FESIN [Concomitant]
     Indication: IRON DEFICIENCY ANAEMIA
     Route: 042
     Dates: start: 20060302
  5. ESPO [Concomitant]
     Indication: NEPHROGENIC ANAEMIA
     Route: 042
  6. ELCITONIN [Concomitant]
     Indication: OSTEOPOROSIS
     Route: 042
  7. D-ALFA [Concomitant]
     Indication: HYPOPARATHYROIDISM
     Route: 048
  8. NORVASC [Concomitant]
     Indication: HYPERTENSION
     Route: 048
  9. NU-LOTAN [Concomitant]
     Indication: HYPERTENSION
     Route: 048
  10. CALTAN [Concomitant]
     Indication: HYPERPHOSPHATAEMIA
     Route: 048
  11. TAMSULOSIN HCL [Concomitant]
     Indication: DYSURIA
     Route: 048
  12. PERSANTIN [Concomitant]
     Route: 048
  13. SEVEN E-P [Concomitant]
     Indication: GASTRECTOMY
     Route: 048
  14. VITAMEDIN [Concomitant]
     Indication: VITAMIN B1 DEFICIENCY
     Route: 048
  15. VITAMEDIN [Concomitant]
     Indication: VITAMIN B2 DEFICIENCY
     Route: 048
  16. LAC B [Concomitant]
     Indication: GASTRECTOMY
     Route: 048
  17. DAI-KENCHU-TO [Concomitant]
     Indication: ABDOMINAL SYMPTOM
     Route: 048
  18. CIMETIDINE [Concomitant]
     Indication: GYNAECOMASTIA

REACTIONS (11)
  - ABDOMINAL PAIN [None]
  - BLOOD UREA INCREASED [None]
  - EOSINOPHIL COUNT INCREASED [None]
  - FAECES DISCOLOURED [None]
  - HAEMOGLOBIN DECREASED [None]
  - NAUSEA [None]
  - OXYGEN SATURATION DECREASED [None]
  - PRURITUS [None]
  - PYREXIA [None]
  - RASH [None]
  - STRIDOR [None]
